FAERS Safety Report 19478057 (Version 1)
Quarter: 2021Q2

REPORT INFORMATION
  Report Type: Spontaneous
  Country: GB (occurrence: GB)
  Receive Date: 20210630
  Receipt Date: 20210630
  Transmission Date: 20210717
  Serious: Yes (Life-Threatening, Hospitalization)
  Sender: FDA-Public Use
  Company Number: GB-PERRIGO-13GB014088

PATIENT

DRUGS (8)
  1. FLUOXETINE [Concomitant]
     Active Substance: FLUOXETINE HYDROCHLORIDE
     Indication: DEPRESSION
     Dosage: DOSAGE FORM: UNSPECIFIED
     Route: 065
  2. GENTAMICIN. [Suspect]
     Active Substance: GENTAMICIN
     Indication: PRODUCT USED FOR UNKNOWN INDICATION
     Route: 065
  3. PARACETAMOL [Suspect]
     Active Substance: ACETAMINOPHEN
     Indication: PRODUCT USED FOR UNKNOWN INDICATION
     Dosage: INTERVAL DOSAGE DEFINITION: 813: TOTAL; 8000 MG; SINGLE; OVERDOSE. 16 X 500MG TABLETS.
     Route: 048
  4. DIPYRIDAMOLE. [Suspect]
     Active Substance: DIPYRIDAMOLE
     Dosage: 10MG/ML
     Route: 065
  5. PARACETAMOL [Suspect]
     Active Substance: ACETAMINOPHEN
     Indication: PRODUCT USED FOR UNKNOWN INDICATION
     Dosage: INTERVAL DOSAGE DEFINITION: 813: TOTAL; 8000 MG; SINGLE; OVERDOSE. 16 X 500MG TABLETS
     Route: 048
  6. PARACETAMOL [Suspect]
     Active Substance: ACETAMINOPHEN
     Indication: PRODUCT USED FOR UNKNOWN INDICATION
     Dosage: 8000 MG
     Route: 048
  7. PERSANTIN [Suspect]
     Active Substance: DIPYRIDAMOLE
     Indication: PRODUCT USED FOR UNKNOWN INDICATION
     Dosage: DOSAGE FORM: TABLET; INTERVAL DOSAGE DEFN:813: TOTAL;8000 MG; SINGLE. OVERDOSE.40 X 200MG TABLETS.
     Route: 048
  8. PARACETAMOL [Suspect]
     Active Substance: ACETAMINOPHEN
     Indication: PRODUCT USED FOR UNKNOWN INDICATION
     Dosage: INTERVAL DOSAGE DEFINITION: 813: TOTAL; 8000 MG; SINGLE; OVERDOSE. 16 X 500MG TABLETS
     Route: 048

REACTIONS (18)
  - Hepatic failure [Unknown]
  - Multiple organ dysfunction syndrome [Recovered/Resolved]
  - Hepatic function abnormal [Recovered/Resolved]
  - Delirium [Recovered/Resolved]
  - Metabolic acidosis [Recovered/Resolved]
  - Small intestinal obstruction [Unknown]
  - Liver function test abnormal [Recovered/Resolved]
  - Overdose [Recovered/Resolved]
  - Toxicity to various agents [Unknown]
  - Hypotension [Recovered/Resolved]
  - Renal impairment [Recovered/Resolved]
  - Dysphonia [Recovered/Resolved]
  - Intestinal ischaemia [Recovered/Resolved]
  - Anuria [Recovered/Resolved]
  - Cardiac arrest [Recovered/Resolved]
  - Acute kidney injury [Recovered/Resolved]
  - Deafness neurosensory [Not Recovered/Not Resolved]
  - Sinus tachycardia [Recovered/Resolved]
